FAERS Safety Report 5902549-9 (Version None)
Quarter: 2008Q3

REPORT INFORMATION
  Report Type: 
  Country: None (occurrence: None)
  Receive Date: 20080925
  Receipt Date: 20080911
  Transmission Date: 20090109
  Serious: No
  Sender: FDA-Public Use
  Company Number: 230751K07USA

PATIENT
  Age: 47 Year
  Sex: Female

DRUGS (3)
  1. REBIF [Suspect]
     Indication: MULTIPLE SCLEROSIS
     Dosage: 22 MCG, 3 IN 1 WEEKS, SUBCUTANEOUS  44 MCG, 3 IN 1 WEEKD, SUBCUTANEOUS
     Route: 058
     Dates: start: 20060324, end: 20070101
  2. REBIF [Suspect]
     Indication: MULTIPLE SCLEROSIS
     Dosage: 22 MCG, 3 IN 1 WEEKS, SUBCUTANEOUS  44 MCG, 3 IN 1 WEEKD, SUBCUTANEOUS
     Route: 058
     Dates: start: 20070101
  3. ALEVE (CAPLET) [Concomitant]

REACTIONS (5)
  - ASTHENIA [None]
  - COGNITIVE DISORDER [None]
  - DELAYED SLEEP PHASE [None]
  - DEPRESSED LEVEL OF CONSCIOUSNESS [None]
  - SOMNOLENCE [None]
